FAERS Safety Report 17867489 (Version 15)
Quarter: 2025Q1

REPORT INFORMATION
  Report Type: Report from Study
  Country: US (occurrence: US)
  Receive Date: 20200605
  Receipt Date: 20250211
  Transmission Date: 20250409
  Serious: Yes (Hospitalization, Other)
  Sender: TAKEDA
  Company Number: US-SHIRE-US202005189

PATIENT
  Age: 81 Year
  Sex: Female
  Weight: 71 kg

DRUGS (73)
  1. HUMAN IMMUNOGLOBULIN G [Suspect]
     Active Substance: HUMAN IMMUNOGLOBULIN G
     Indication: Immunodeficiency common variable
     Dosage: 8 GRAM, 1/WEEK
     Dates: start: 20120215
  2. HUMAN IMMUNOGLOBULIN G [Suspect]
     Active Substance: HUMAN IMMUNOGLOBULIN G
     Dosage: 8 GRAM, 1/WEEK
     Dates: start: 20120216
  3. HUMAN IMMUNOGLOBULIN G [Suspect]
     Active Substance: HUMAN IMMUNOGLOBULIN G
     Dosage: 8 GRAM, 1/WEEK
     Dates: start: 20121109
  4. HUMAN IMMUNOGLOBULIN G [Suspect]
     Active Substance: HUMAN IMMUNOGLOBULIN G
     Dosage: 8 GRAM, 1/WEEK
     Dates: start: 20121205
  5. HUMAN IMMUNOGLOBULIN G [Suspect]
     Active Substance: HUMAN IMMUNOGLOBULIN G
     Dosage: 8 GRAM, 1/WEEK
     Dates: start: 20130227
  6. HUMAN IMMUNOGLOBULIN G [Suspect]
     Active Substance: HUMAN IMMUNOGLOBULIN G
     Dosage: 8 GRAM, 1/WEEK
  7. DIPHENHYDRAMINE [Concomitant]
     Active Substance: DIPHENHYDRAMINE
  8. EPINEPHRINE [Concomitant]
     Active Substance: EPINEPHRINE
  9. CYCLOBENZAPRINE [Concomitant]
     Active Substance: CYCLOBENZAPRINE
  10. PREDNISONE [Concomitant]
     Active Substance: PREDNISONE
  11. SPIRIVA [Concomitant]
     Active Substance: TIOTROPIUM BROMIDE MONOHYDRATE
  12. BROMPHENIRAMINE [Concomitant]
     Active Substance: BROMPHENIRAMINE
  13. AZITHROMYCIN [Concomitant]
     Active Substance: AZITHROMYCIN
  14. MUCINEX [Concomitant]
     Active Substance: GUAIFENESIN
  15. MONTELUKAST [Concomitant]
     Active Substance: MONTELUKAST
  16. BREO ELLIPTA [Concomitant]
     Active Substance: FLUTICASONE FUROATE\VILANTEROL TRIFENATATE
  17. FLUOXETINE [Concomitant]
     Active Substance: FLUOXETINE HYDROCHLORIDE
  18. MYRBETRIQ [Concomitant]
     Active Substance: MIRABEGRON
  19. FLUTICASONE [Concomitant]
     Active Substance: FLUTICASONE
  20. AMBIEN [Concomitant]
     Active Substance: ZOLPIDEM TARTRATE
  21. OMEPRAZOLE [Concomitant]
     Active Substance: OMEPRAZOLE
  22. GABAPENTIN [Concomitant]
     Active Substance: GABAPENTIN
  23. SIMVASTATIN [Concomitant]
     Active Substance: SIMVASTATIN
  24. LMS [Concomitant]
  25. OXYBUTYNIN [Concomitant]
     Active Substance: OXYBUTYNIN
  26. PROAIR HFA [Concomitant]
     Active Substance: ALBUTEROL SULFATE
  27. LIDOCAINE [Concomitant]
     Active Substance: LIDOCAINE
  28. BROMPHENIRAMINE MALEATE/PSEUDOEPHEDRINE HCL/DEXTROMETHORPHAN HBR [Concomitant]
  29. SPIRIVA RESPIMAT [Concomitant]
     Active Substance: TIOTROPIUM BROMIDE
  30. MUCINEX DM [Concomitant]
     Active Substance: DEXTROMETHORPHAN HYDROBROMIDE\GUAIFENESIN
  31. Caltrate 600+d3 plus minerals [Concomitant]
  32. FLUTICASONE PROPIONATE [Concomitant]
     Active Substance: FLUTICASONE PROPIONATE
  33. ALBUTEROL [Concomitant]
     Active Substance: ALBUTEROL
  34. Sulfate de ferrous [Concomitant]
  35. CYCLOBENZAPRINE [Concomitant]
     Active Substance: CYCLOBENZAPRINE
  36. BREO ELLIPTA [Concomitant]
     Active Substance: FLUTICASONE FUROATE\VILANTEROL TRIFENATATE
  37. PANTOPRAZOLE [Concomitant]
     Active Substance: PANTOPRAZOLE
  38. OXYBUTYNIN CHLORIDE [Concomitant]
     Active Substance: OXYBUTYNIN CHLORIDE
  39. ACETAMINOPHEN [Concomitant]
     Active Substance: ACETAMINOPHEN
  40. ALENDRONATE [Concomitant]
     Active Substance: ALENDRONATE SODIUM
  41. ZOLPIDEM [Concomitant]
     Active Substance: ZOLPIDEM TARTRATE
  42. SIMVASTATIN [Concomitant]
     Active Substance: SIMVASTATIN
  43. LEVOCETIRIZINE [Concomitant]
     Active Substance: LEVOCETIRIZINE
  44. FISH OIL [Concomitant]
     Active Substance: FISH OIL
  45. FLUCONAZOLE [Concomitant]
     Active Substance: FLUCONAZOLE
  46. MUCINEX DM [Concomitant]
     Active Substance: DEXTROMETHORPHAN HYDROBROMIDE\GUAIFENESIN
  47. ONDANSETRON [Concomitant]
     Active Substance: ONDANSETRON
  48. DULOXETINE [Concomitant]
     Active Substance: DULOXETINE
  49. PROMETHAZINE [Concomitant]
     Active Substance: PROMETHAZINE HYDROCHLORIDE
  50. DIPHENHYDRAMINE [Concomitant]
     Active Substance: DIPHENHYDRAMINE
  51. LIDOCAINE [Concomitant]
     Active Substance: LIDOCAINE
  52. MONTELUKAST [Concomitant]
     Active Substance: MONTELUKAST
  53. FLUOXETINE [Concomitant]
     Active Substance: FLUOXETINE HYDROCHLORIDE
  54. PROAIR HFA [Concomitant]
     Active Substance: ALBUTEROL SULFATE
  55. CALCIUM CARBONATE [Concomitant]
     Active Substance: CALCIUM CARBONATE
  56. VITAMIN D3 [Concomitant]
     Active Substance: CHOLECALCIFEROL
  57. METOPROLOL TARTRATE [Concomitant]
     Active Substance: METOPROLOL TARTRATE
  58. ASPIRIN [Concomitant]
     Active Substance: ASPIRIN
  59. FLUOXETINE HYDROCHLORIDE [Concomitant]
     Active Substance: FLUOXETINE HYDROCHLORIDE
  60. DULOXETINE HYDROCHLORIDE [Concomitant]
     Active Substance: DULOXETINE HYDROCHLORIDE
  61. LEVOCETIRIZINE DIHYDROCHLORIDE [Concomitant]
     Active Substance: LEVOCETIRIZINE DIHYDROCHLORIDE
  62. MONTELUKAST SODIUM [Concomitant]
     Active Substance: MONTELUKAST SODIUM
  63. XYZAL [Concomitant]
     Active Substance: LEVOCETIRIZINE DIHYDROCHLORIDE
  64. CARVEDILOL [Concomitant]
     Active Substance: CARVEDILOL
  65. ROSUVASTATIN CALCIUM [Concomitant]
     Active Substance: ROSUVASTATIN CALCIUM
  66. AMLODIPINE BESYLATE [Concomitant]
     Active Substance: AMLODIPINE BESYLATE
  67. PANTOPRAZOLE SODIUM [Concomitant]
     Active Substance: PANTOPRAZOLE SODIUM
  68. ZOLPIDEM TARTRATE [Concomitant]
     Active Substance: ZOLPIDEM TARTRATE
  69. ALENDRONATE SODIUM [Concomitant]
     Active Substance: ALENDRONATE SODIUM
  70. ALBUTEROL SULFATE [Concomitant]
     Active Substance: ALBUTEROL SULFATE
  71. DIPHENHYDRAMINE HYDROCHLORIDE [Concomitant]
     Active Substance: DIPHENHYDRAMINE HYDROCHLORIDE
  72. FLUOXETINE HYDROCHLORIDE [Concomitant]
     Active Substance: FLUOXETINE HYDROCHLORIDE
  73. ONDANSETRON HYDROCHLORIDE [Concomitant]
     Active Substance: ONDANSETRON HYDROCHLORIDE

REACTIONS (17)
  - Lower respiratory tract infection [Recovering/Resolving]
  - Arthritis [Unknown]
  - Infection [Unknown]
  - Cardiac disorder [Unknown]
  - Lumbar vertebral fracture [Unknown]
  - Respiratory tract infection [Unknown]
  - Fungal pharyngitis [Unknown]
  - Pneumonia [Recovering/Resolving]
  - Urinary tract infection [Unknown]
  - Hypoacusis [Unknown]
  - Fall [Unknown]
  - Wrist fracture [Unknown]
  - Pharyngitis [Unknown]
  - Vocal cord disorder [Unknown]
  - Influenza [Unknown]
  - Asthma [Unknown]
  - Back pain [Unknown]

NARRATIVE: CASE EVENT DATE: 20230112
